FAERS Safety Report 12406406 (Version 2)
Quarter: 2016Q3

REPORT INFORMATION
  Report Type: Spontaneous
  Country: DE (occurrence: DE)
  Receive Date: 20160526
  Receipt Date: 20160928
  Transmission Date: 20161109
  Serious: Yes (Disabling)
  Sender: FDA-Public Use
  Company Number: DE-IPSEN BIOPHARMACEUTICALS, INC.-2016-04504

PATIENT
  Age: 51 Year
  Sex: Male

DRUGS (6)
  1. AZZALURE [Suspect]
     Active Substance: BOTULINUM TOXIN TYPE A
     Indication: TEMPOROMANDIBULAR JOINT SYNDROME
     Dosage: ONE VIAL
     Route: 030
     Dates: start: 20160422, end: 20160422
  2. AZZALURE [Suspect]
     Active Substance: BOTULINUM TOXIN TYPE A
     Indication: TEMPOROMANDIBULAR JOINT SYNDROME
  3. AZZALURE [Suspect]
     Active Substance: BOTULINUM TOXIN TYPE A
     Indication: TEMPOROMANDIBULAR JOINT SYNDROME
  4. AZZALURE [Suspect]
     Active Substance: BOTULINUM TOXIN TYPE A
     Indication: TEMPOROMANDIBULAR JOINT SYNDROME
  5. AZZALURE [Suspect]
     Active Substance: BOTULINUM TOXIN TYPE A
     Indication: PRODUCT USE ISSUE
  6. AZZALURE [Suspect]
     Active Substance: BOTULINUM TOXIN TYPE A
     Indication: TENSION HEADACHE

REACTIONS (1)
  - Deafness [Unknown]

NARRATIVE: CASE EVENT DATE: 20160430
